FAERS Safety Report 5081139-7 (Version None)
Quarter: 2006Q3

REPORT INFORMATION
  Report Type: 
  Country: None (occurrence: None)
  Receive Date: 20060720
  Receipt Date: 20060511
  Transmission Date: 20061208
  Serious: Yes (Hospitalization, Other)
  Sender: FDA-Public Use
  Company Number: 2006039535

PATIENT
  Age: 75 Year
  Sex: Female
  Weight: 142.8831 kg

DRUGS (2)
  1. CELEBREX [Suspect]
     Indication: ARTHRITIS
  2. VIOXX [Suspect]
     Indication: ARTHRITIS

REACTIONS (3)
  - HYPERSENSITIVITY [None]
  - RASH [None]
  - RENAL FAILURE ACUTE [None]
